FAERS Safety Report 9416972 (Version 1)
Quarter: 2013Q3

REPORT INFORMATION
  Report Type: Spontaneous
  Country: US (occurrence: US)
  Receive Date: 20130724
  Receipt Date: 20130724
  Transmission Date: 20140515
  Serious: No
  Sender: FDA-Public Use
  Company Number: US-PFIZER INC-2013213377

PATIENT
  Age: 71 Year
  Sex: Female
  Weight: 83.45 kg

DRUGS (2)
  1. CELEBREX [Suspect]
     Indication: OSTEOARTHRITIS
     Dosage: 200 MG, 1X/DAY
     Dates: end: 201305
  2. HYDROCODONE [Concomitant]
     Indication: PAIN
     Dosage: 500 MG, 1X/DAY

REACTIONS (1)
  - Pain [Not Recovered/Not Resolved]
